FAERS Safety Report 6796081-0 (Version None)
Quarter: 2010Q2

REPORT INFORMATION
  Report Type: 
  Country: None (occurrence: None)
  Receive Date: 20100625
  Receipt Date: 20100519
  Transmission Date: 20101027
  Serious: Yes (Other)
  Sender: FDA-Public Use
  Company Number: US-BAXTER-2010BH003348

PATIENT
  Age: 68 Year
  Sex: Male
  Weight: 81 kg

DRUGS (13)
  1. HEPARIN SODIUM [Suspect]
     Indication: KNEE ARTHROPLASTY
     Route: 042
     Dates: start: 20071219, end: 20071219
  2. HEPARIN SODIUM [Suspect]
     Indication: MYOCARDIAL INFARCTION
     Route: 042
     Dates: start: 20071219, end: 20071219
  3. HEPARIN SODIUM [Suspect]
     Route: 042
     Dates: start: 20071224, end: 20071224
  4. HEPARIN SODIUM [Suspect]
     Route: 042
     Dates: start: 20071224, end: 20071224
  5. HEPARIN SODIUM [Suspect]
     Route: 041
     Dates: start: 20071223
  6. HEPARIN SODIUM [Suspect]
     Route: 041
     Dates: start: 20071223
  7. COUMADIN [Concomitant]
     Indication: DRUG USE FOR UNKNOWN INDICATION
     Route: 065
  8. TOPROL-XL [Concomitant]
     Indication: DRUG USE FOR UNKNOWN INDICATION
     Route: 065
  9. PERCOCET [Concomitant]
     Indication: DRUG USE FOR UNKNOWN INDICATION
     Route: 065
  10. PANTOPRAZOLE [Concomitant]
     Indication: DRUG USE FOR UNKNOWN INDICATION
     Route: 065
  11. CRESTOR [Concomitant]
     Indication: DRUG USE FOR UNKNOWN INDICATION
     Route: 065
  12. ALTACE [Concomitant]
     Indication: DRUG USE FOR UNKNOWN INDICATION
     Route: 065
  13. BENICAR [Concomitant]
     Indication: DRUG USE FOR UNKNOWN INDICATION
     Route: 065

REACTIONS (9)
  - CARDIAC FAILURE CONGESTIVE [None]
  - CHEST PAIN [None]
  - HEPARIN-INDUCED THROMBOCYTOPENIA [None]
  - HYPERHIDROSIS [None]
  - HYPERTENSION [None]
  - HYPOTENSION [None]
  - IMPETIGO [None]
  - MYOCARDIAL INFARCTION [None]
  - STAPHYLOCOCCAL INFECTION [None]
